FAERS Safety Report 4828134-8 (Version None)
Quarter: 2005Q4

REPORT INFORMATION
  Report Type: 
  Country: None (occurrence: None)
  Receive Date: 20051110
  Receipt Date: 20051102
  Transmission Date: 20060501
  Serious: Yes (Disabling)
  Sender: FDA-Public Use
  Company Number: HQWYE682824JUN05

PATIENT
  Age: 47 Year
  Sex: Male

DRUGS (6)
  1. PANTOZOL                    (PANTOPRAZOLE DELAYED RELEASE) [Suspect]
     Indication: GASTRITIS
     Dosage: 40 MG 2X PER 1 DAY; ORAL
     Route: 048
     Dates: start: 20041001
  2. PANTOZOL                    (PANTOPRAZOLE DELAYED RELEASE) [Suspect]
     Indication: REFLUX OESOPHAGITIS
     Dosage: 40 MG 2X PER 1 DAY; ORAL
     Route: 048
     Dates: start: 20041001
  3. AMOXICILLIN [Suspect]
     Indication: GASTRITIS
     Dosage: 1000 MG 2X PER 1 DAY; ORAL
     Route: 048
     Dates: start: 20041001
  4. AMOXICILLIN [Suspect]
     Indication: REFLUX OESOPHAGITIS
     Dosage: 1000 MG 2X PER 1 DAY; ORAL
     Route: 048
     Dates: start: 20041001
  5. CLARITHROMYCIN [Suspect]
     Indication: GASTRITIS
     Dosage: 500 MG 2X PER 1 DAY; ORAL
     Route: 048
     Dates: start: 20041001
  6. CLARITHROMYCIN [Suspect]
     Indication: REFLUX OESOPHAGITIS
     Dosage: 500 MG 2X PER 1 DAY; ORAL
     Route: 048
     Dates: start: 20041001

REACTIONS (6)
  - ACTIVITIES OF DAILY LIVING IMPAIRED [None]
  - DRY MOUTH [None]
  - GLOSSODYNIA [None]
  - THERAPY NON-RESPONDER [None]
  - TONGUE DISCOLOURATION [None]
  - TONGUE EXFOLIATION [None]
